FAERS Safety Report 9698016 (Version 1)
Quarter: 2013Q4

REPORT INFORMATION
  Report Type: Spontaneous
  Country: US (occurrence: None)
  Receive Date: 20131115
  Receipt Date: 20131115
  Transmission Date: 20140711
  Serious: Yes (Other)
  Sender: FDA-Public Use
  Company Number: 2013036955

PATIENT
  Age: 40 Year
  Sex: Male

DRUGS (4)
  1. PRIVIGEN [Suspect]
     Indication: MYASTHENIA GRAVIS
     Route: 042
     Dates: start: 20121218, end: 20121218
  2. SPIROCORT (PREDNISOLONE) [Concomitant]
  3. SANDIMMUN (CICLOSPORIN) INFUSION [Concomitant]
  4. LYRICA (PREGAMBLIN) [Concomitant]

REACTIONS (5)
  - Pruritus generalised [None]
  - Rash pruritic [None]
  - Rash generalised [None]
  - Myalgia [None]
  - Body temperature increased [None]
